FAERS Safety Report 9585811 (Version 2)
Quarter: 2014Q1

REPORT INFORMATION
  Report Type: Spontaneous
  Country: GB (occurrence: None)
  Receive Date: 20131001
  Receipt Date: 20140128
  Transmission Date: 20141002
  Serious: Yes (Hospitalization, Other)
  Sender: FDA-Public Use
  Company Number: AUR-APL-2013-07887

PATIENT
  Age: 55 Year
  Sex: Female

DRUGS (3)
  1. RIBAVIRIN [Suspect]
     Indication: HEPATITIS C
     Dates: start: 20120706
  2. PEGINTERFERON ALFA-2B [Suspect]
     Route: 058
     Dates: start: 20121107
  3. TELAPREVIR [Suspect]
     Indication: HEPATITIS C
     Dosage: 2250 MG (750 MG 3 IN 1 D), ORAL
     Route: 048
     Dates: start: 20120803

REACTIONS (11)
  - Dry skin [None]
  - Pruritus [None]
  - Nausea [None]
  - Anaemia [None]
  - Vomiting [None]
  - Anorectal discomfort [None]
  - Lethargy [None]
  - Proctalgia [None]
  - Melanocytic naevus [None]
  - Rash [None]
  - Depression [None]
